FAERS Safety Report 13352802 (Version 1)
Quarter: 2017Q1

REPORT INFORMATION
  Report Type: Spontaneous
  Country: CA (occurrence: CA)
  Receive Date: 20170320
  Receipt Date: 20170320
  Transmission Date: 20170429
  Serious: Yes (Death)
  Sender: FDA-Public Use
  Company Number: CA-TEVA-750605ACC

PATIENT
  Sex: Male

DRUGS (1)
  1. HYDROMORPHONE [Suspect]
     Active Substance: HYDROMORPHONE
     Indication: PAIN PROPHYLAXIS

REACTIONS (3)
  - Somnolence [Fatal]
  - Accidental overdose [Fatal]
  - Toxicity to various agents [Fatal]
